FAERS Safety Report 17729418 (Version 1)
Quarter: 2020Q2

REPORT INFORMATION
  Report Type: Spontaneous
  Country: JP (occurrence: JP)
  Receive Date: 20200430
  Receipt Date: 20200430
  Transmission Date: 20200714
  Serious: Yes (Hospitalization, Other)
  Sender: FDA-Public Use
  Company Number: JP-TEVA-2020-JP-1232173

PATIENT

DRUGS (6)
  1. CALCIUM CARBONATE. [Suspect]
     Active Substance: CALCIUM CARBONATE
     Route: 064
  2. METOCLOPRAMIDE. [Suspect]
     Active Substance: METOCLOPRAMIDE
     Route: 064
  3. MAXACALCITOL [Suspect]
     Active Substance: MAXACALCITOL
     Indication: BLOOD CALCIUM INCREASED
     Route: 064
  4. ALFACALCIDOL [Suspect]
     Active Substance: ALFACALCIDOL
     Route: 064
  5. FAMOTIDINE. [Suspect]
     Active Substance: FAMOTIDINE
     Route: 064
  6. ADRENALINE [Suspect]
     Active Substance: EPINEPHRINE
     Indication: ANAPHYLACTIC SHOCK
     Route: 064

REACTIONS (2)
  - Asphyxia [Recovered/Resolved]
  - Foetal exposure during pregnancy [Unknown]
